FAERS Safety Report 4534162-2 (Version None)
Quarter: 2004Q4

REPORT INFORMATION
  Report Type: 
  Country: None (occurrence: None)
  Receive Date: 20041221
  Receipt Date: 20041221
  Transmission Date: 20050328
  Serious: Yes (Hospitalization)
  Sender: FDA-Public Use
  Company Number: None

PATIENT
  Age: 54 Year
  Sex: Male
  Weight: 82 kg

DRUGS (9)
  1. FUROSEMIDE [Suspect]
     Indication: ASCITES
     Dosage: 80MG PO QD
     Route: 048
  2. PROPRANOLOL [Concomitant]
  3. SPIRONOLACTONE [Concomitant]
  4. PROTONIX [Concomitant]
  5. KLOR-CON [Concomitant]
  6. ALBUTEROL [Concomitant]
  7. ATROVENT [Concomitant]
  8. DARVOCET [Concomitant]
  9. AMBIEN [Concomitant]

REACTIONS (1)
  - RENAL FAILURE ACUTE [None]
